FAERS Safety Report 6604269-4 (Version None)
Quarter: 2010Q1

REPORT INFORMATION
  Report Type: 
  Country: None (occurrence: None)
  Receive Date: 20100226
  Receipt Date: 20090811
  Transmission Date: 20100710
  Serious: No
  Sender: FDA-Public Use
  Company Number: A0799454A

PATIENT
  Age: 39 Year
  Sex: Female
  Weight: 52 kg

DRUGS (10)
  1. LAMICTAL CD [Suspect]
     Indication: EPILEPSY
     Dosage: 300MG TWICE PER DAY
     Route: 050
     Dates: start: 20080501
  2. PHENYTOIN [Suspect]
     Indication: DRUG USE FOR UNKNOWN INDICATION
     Route: 050
     Dates: end: 20090629
  3. OXCARBAZEPINE [Concomitant]
     Dosage: 1200MG PER DAY
  4. KEPPRA [Concomitant]
  5. ACETAMINOPHEN [Concomitant]
  6. BACLOFEN [Concomitant]
     Dosage: 10MG THREE TIMES PER DAY
     Dates: start: 20090301
  7. FERROUS SULFATE TAB [Concomitant]
     Dosage: 300MG PER DAY
     Dates: start: 20090430
  8. GABAPENTIN [Concomitant]
     Dosage: 600MG TWICE PER DAY
     Dates: start: 20090201
  9. M.V.I. [Concomitant]
  10. TOPIRAMATE [Concomitant]
     Dates: start: 20090201

REACTIONS (3)
  - DRUG LEVEL DECREASED [None]
  - NAUSEA [None]
  - VOMITING [None]
